FAERS Safety Report 7303651-X (Version None)
Quarter: 2011Q1

REPORT INFORMATION
  Report Type: 
  Country: None (occurrence: None)
  Receive Date: 20110221
  Receipt Date: 20110210
  Transmission Date: 20110831
  Serious: Yes (Other)
  Sender: FDA-Public Use
  Company Number: US-AMGEN-USASP2011008025

PATIENT
  Age: 44 Year
  Sex: Male

DRUGS (1)
  1. ENBREL [Suspect]
     Indication: ANKYLOSING SPONDYLITIS
     Dosage: 50 MG, QWK
     Dates: start: 20040101

REACTIONS (5)
  - IRITIS [None]
  - MEMORY IMPAIRMENT [None]
  - VISUAL IMPAIRMENT [None]
  - PHOTOPSIA [None]
  - VITREOUS FLOATERS [None]
